FAERS Safety Report 13229695 (Version 2)
Quarter: 2017Q1

REPORT INFORMATION
  Report Type: Spontaneous
  Country: CN (occurrence: CN)
  Receive Date: 20170214
  Receipt Date: 20170221
  Transmission Date: 20170428
  Serious: No
  Sender: FDA-Public Use
  Company Number: CN-ASTRAZENECA-2017SE09865

PATIENT
  Sex: Male

DRUGS (4)
  1. NICERGOLINE [Concomitant]
     Active Substance: NICERGOLINE
     Dates: start: 2016
  2. SYMBICORT [Suspect]
     Active Substance: BUDESONIDE\FORMOTEROL FUMARATE DIHYDRATE
     Indication: CHRONIC OBSTRUCTIVE PULMONARY DISEASE
     Dosage: SYMBICORT 160 UG, ONCE IN THE MORNING EVERY DAY
     Route: 055
  3. BISOPROLOL FUMARATE. [Concomitant]
     Active Substance: BISOPROLOL FUMARATE
     Indication: CARDIAC DISORDER
     Dosage: 1/4 TABLET IN THE MORNING
     Dates: start: 201601
  4. SYMBICORT [Suspect]
     Active Substance: BUDESONIDE\FORMOTEROL FUMARATE DIHYDRATE
     Indication: ASTHMA
     Dosage: SYMBICORT 160 UG, ONCE IN THE MORNING EVERY DAY
     Route: 055

REACTIONS (2)
  - Computerised tomogram thorax abnormal [Unknown]
  - Haemoptysis [Recovered/Resolved]

NARRATIVE: CASE EVENT DATE: 20161125
